FAERS Safety Report 5406367-X (Version None)
Quarter: 2007Q3

REPORT INFORMATION
  Report Type: 
  Country: None (occurrence: None)
  Receive Date: 20070806
  Receipt Date: 20070720
  Transmission Date: 20080115
  Serious: No
  Sender: FDA-Public Use
  Company Number: US-TYCO HEALTHCARE/MALLINCKRODT-T200700740

PATIENT

DRUGS (11)
  1. METHYLIN [Suspect]
     Indication: ATTENTION DEFICIT/HYPERACTIVITY DISORDER
     Dosage: 7.5 MG, BID
     Dates: end: 20070629
  2. OPTIVAR [Concomitant]
  3. VIGAMOX [Concomitant]
  4. SYNTHROID [Concomitant]
     Indication: HYPOTHYROIDISM
     Dosage: 75 UG, QD
     Route: 048
  5. MEGACE [Concomitant]
     Indication: APPETITE DISORDER
     Dates: start: 20070626
  6. DARVOCET [Concomitant]
     Indication: PAIN
     Dosage: UNK, PRN
  7. ATIVAN [Concomitant]
     Route: 050
  8. ATIVAN [Concomitant]
     Route: 048
     Dates: start: 20070704, end: 20070718
  9. LEXAPRO [Concomitant]
     Dates: start: 20070718
  10. SEROQUEL [Concomitant]
     Indication: AGITATION
     Dosage: 25 MG, BID
     Dates: start: 20070718
  11. ANDROGEL [Concomitant]
     Dosage: 5 MG, QD
     Dates: start: 20070719

REACTIONS (1)
  - AGITATION [None]
